FAERS Safety Report 15342245 (Version 1)
Quarter: 2018Q3

REPORT INFORMATION
  Report Type: Spontaneous
  Country: US (occurrence: US)
  Receive Date: 20180902
  Receipt Date: 20180902
  Transmission Date: 20181010
  Serious: Yes (Hospitalization)
  Sender: FDA-Public Use
  Company Number: US-JNJFOC-20180829300

PATIENT
  Sex: Female
  Weight: 44 kg

DRUGS (18)
  1. BUTALBITAL, ACETAMINOPHEN, AND CAFFEINE [Concomitant]
     Active Substance: ACETAMINOPHEN\BUTALBITAL\CAFFEINE
     Route: 048
  2. CEFDINIR. [Concomitant]
     Active Substance: CEFDINIR
     Route: 048
  3. MAGNESIUM CITRATE. [Concomitant]
     Active Substance: MAGNESIUM CITRATE
     Route: 048
  4. KCL [Concomitant]
     Active Substance: POTASSIUM CHLORIDE
     Route: 048
  5. SIROLIMUS. [Concomitant]
     Active Substance: SIROLIMUS
     Dosage: ON MON, WEDS, FRI, SAT
     Route: 048
  6. VITAMIN D2 [Concomitant]
     Active Substance: ERGOCALCIFEROL
     Dosage: 50000 UNIT, ON TUES, FRI
     Route: 048
  7. CLOTRIMAZOLE. [Concomitant]
     Active Substance: CLOTRIMAZOLE
     Route: 048
  8. LASIX [Concomitant]
     Active Substance: FUROSEMIDE
     Route: 048
  9. BACTRIM DS [Concomitant]
     Active Substance: SULFAMETHOXAZOLE\TRIMETHOPRIM
     Dosage: 800 MG, EVERY MON, WEDS, FRI
     Route: 065
  10. POSACONAZOLE [Concomitant]
     Active Substance: POSACONAZOLE
     Route: 048
  11. PREDNISONE. [Concomitant]
     Active Substance: PREDNISONE
     Route: 048
  12. NAPROXEN. [Concomitant]
     Active Substance: NAPROXEN
     Route: 048
  13. PROTONIX [Concomitant]
     Active Substance: PANTOPRAZOLE SODIUM
     Route: 048
  14. ROPINIROLE. [Concomitant]
     Active Substance: ROPINIROLE
     Route: 048
  15. ACYCLOVIR. [Concomitant]
     Active Substance: ACYCLOVIR
  16. IMBRUVICA [Suspect]
     Active Substance: IBRUTINIB
     Indication: MYELODYSPLASTIC SYNDROME
     Route: 048
     Dates: start: 2018
  17. LIFITEGRAST [Concomitant]
     Active Substance: LIFITEGRAST
     Dosage: 1 DROP IN EACH EYE, BID
  18. TACROLIMUS. [Concomitant]
     Active Substance: TACROLIMUS
     Route: 048

REACTIONS (4)
  - Lung infection [Unknown]
  - Back pain [Unknown]
  - Off label use [Unknown]
  - Product use in unapproved indication [Unknown]

NARRATIVE: CASE EVENT DATE: 2018
